FAERS Safety Report 10746252 (Version 1)
Quarter: 2015Q1

REPORT INFORMATION
  Report Type: Spontaneous
  Country: US (occurrence: None)
  Receive Date: 20150120
  Receipt Date: 20150120
  Transmission Date: 20150721
  Serious: No
  Sender: FDA-Public Use
  Company Number: AEGR000787

PATIENT
  Age: 63 Year
  Sex: Female
  Weight: 88.4 kg

DRUGS (4)
  1. SIMVASTATIN. [Concomitant]
     Active Substance: SIMVASTATIN
  2. LOVAZA [Concomitant]
     Active Substance: OMEGA-3-ACID ETHYL ESTERS
  3. JUXTAPID [Suspect]
     Active Substance: LOMITAPIDE MESYLATE
     Indication: TYPE IIA HYPERLIPIDAEMIA
     Route: 048
     Dates: start: 20140918, end: 201412
  4. ZETIA [Concomitant]
     Active Substance: EZETIMIBE

REACTIONS (3)
  - Weight decreased [None]
  - Diarrhoea [None]
  - Decreased appetite [None]

NARRATIVE: CASE EVENT DATE: 20141004
